FAERS Safety Report 9618104 (Version 1)
Quarter: 2013Q4

REPORT INFORMATION
  Report Type: Spontaneous
  Country: DE (occurrence: DE)
  Receive Date: 20131013
  Receipt Date: 20131013
  Transmission Date: 20140711
  Serious: Yes (Other)
  Sender: FDA-Public Use
  Company Number: DE-009507513-1310DEU004606

PATIENT
  Sex: Male

DRUGS (3)
  1. MIRTAZAPINE [Suspect]
     Dosage: UNK
     Route: 048
     Dates: start: 201307
  2. TEGRETAL [Interacting]
     Dosage: UNK
     Route: 048
     Dates: start: 2003
  3. INSIDON [Concomitant]

REACTIONS (4)
  - Pulmonary function test decreased [Unknown]
  - Chest discomfort [Unknown]
  - Dyspnoea [Unknown]
  - Drug interaction [Unknown]
